FAERS Safety Report 8384169-2 (Version None)
Quarter: 2012Q2

REPORT INFORMATION
  Report Type: 
  Country: None (occurrence: None)
  Receive Date: 20120524
  Receipt Date: 19940311
  Transmission Date: 20120825
  Serious: Yes (Death, Hospitalization)
  Sender: FDA-Public Use
  Company Number: GB-ROCHE-23195

PATIENT
  Sex: Female
  Weight: 64 kg

DRUGS (1)
  1. CARDENE [Suspect]
     Indication: OVERDOSE
     Route: 048
     Dates: start: 19930224, end: 19930224

REACTIONS (3)
  - COMPLETED SUICIDE [None]
  - OVERDOSE [None]
  - CIRCULATORY COLLAPSE [None]
